FAERS Safety Report 23753087 (Version 2)
Quarter: 2024Q2

REPORT INFORMATION
  Report Type: Spontaneous
  Country: US (occurrence: US)
  Receive Date: 20240417
  Receipt Date: 20240506
  Transmission Date: 20240716
  Serious: Yes (Other)
  Sender: FDA-Public Use
  Company Number: US-JAZZ PHARMACEUTICALS-2024-US-006125

PATIENT
  Age: 30 Year
  Sex: Male
  Weight: 104.3 kg

DRUGS (4)
  1. XYREM [Suspect]
     Active Substance: SODIUM OXYBATE
     Indication: Cataplexy
     Dosage: UNK
  2. XYREM [Suspect]
     Active Substance: SODIUM OXYBATE
     Indication: Narcolepsy
     Dosage: 2 GRAM
  3. XYREM [Suspect]
     Active Substance: SODIUM OXYBATE
     Dosage: 4 ML AT 10 PM AND REPEAT DOSE AT 2 AM---500 MG/ML
  4. XYREM [Suspect]
     Active Substance: SODIUM OXYBATE
     Dosage: TOTAL DOSE: 57 MGLKG

REACTIONS (2)
  - Depressed level of consciousness [Recovering/Resolving]
  - Extra dose administered [Recovering/Resolving]
